FAERS Safety Report 8622339-6 (Version None)
Quarter: 2012Q3

REPORT INFORMATION
  Report Type: 
  Country: None (occurrence: None)
  Receive Date: 20120827
  Receipt Date: 20120820
  Transmission Date: 20120928
  Serious: No
  Sender: FDA-Public Use
  Company Number: US-009507513-1208USA009098

PATIENT

DRUGS (1)
  1. PEG-INTRON [Suspect]
     Indication: HEPATITIS C
     Dosage: 120 MICROGRAM, QW
     Dates: start: 20120607

REACTIONS (4)
  - STOMATITIS [None]
  - GLOSSODYNIA [None]
  - LIP PAIN [None]
  - GINGIVAL PAIN [None]
